FAERS Safety Report 13856081 (Version 2)
Quarter: 2017Q3

REPORT INFORMATION
  Report Type: Spontaneous
  Country: AU (occurrence: AU)
  Receive Date: 20170810
  Receipt Date: 20170821
  Transmission Date: 20171127
  Serious: Yes (Hospitalization, Other)
  Sender: FDA-Public Use
  Company Number: AU-B.I. PHARMACEUTICALS,INC./RIDGEFIELD-2017-BI-044228

PATIENT
  Age: 59 Year
  Sex: Female

DRUGS (1)
  1. OFEV [Suspect]
     Active Substance: NINTEDANIB
     Indication: IDIOPATHIC PULMONARY FIBROSIS
     Route: 065

REACTIONS (6)
  - Glomerulonephritis rapidly progressive [Unknown]
  - Anaemia [Unknown]
  - Diarrhoea [Unknown]
  - Acute kidney injury [Unknown]
  - Anti-glomerular basement membrane antibody [Recovering/Resolving]
  - Haematuria [Unknown]
